FAERS Safety Report 21083184 (Version 1)
Quarter: 2022Q3

REPORT INFORMATION
  Report Type: Spontaneous
  Country: US (occurrence: None)
  Receive Date: 20220714
  Receipt Date: 20220714
  Transmission Date: 20221027
  Serious: Yes (Hospitalization)
  Sender: FDA-Public Use
  Company Number: None

PATIENT
  Sex: Female
  Weight: 78.38 kg

DRUGS (25)
  1. LENALIDOMIDE [Suspect]
     Active Substance: LENALIDOMIDE
     Indication: Plasma cell myeloma
     Dosage: 5 MG DAILY 21 DAY ORAL?
     Route: 048
     Dates: start: 202206
  2. ACETAMINOPHEN [Concomitant]
     Active Substance: ACETAMINOPHEN
  3. ACYCLOVIR [Concomitant]
     Active Substance: ACYCLOVIR
  4. ALBUTEROL SULFATE [Concomitant]
     Active Substance: ALBUTEROL SULFATE
  5. ATORVASTATIN [Concomitant]
     Active Substance: ATORVASTATIN
  6. BUMETANIDE [Concomitant]
     Active Substance: BUMETANIDE
  7. DILTAZEM [Concomitant]
  8. ELIQUIS [Concomitant]
     Active Substance: APIXABAN
  9. FERROUS SULFATE [Concomitant]
     Active Substance: FERROUS SULFATE
  10. FLEET ENEMA [Concomitant]
     Active Substance: SODIUM PHOSPHATE, DIBASIC\SODIUM PHOSPHATE, MONOBASIC
  11. HYDROCIL ORAL PACKET [Concomitant]
  12. INCRUSE ELLIPTA [Concomitant]
     Active Substance: UMECLIDINIUM BROMIDE
  13. MAGNESIUM OXIDE [Concomitant]
     Active Substance: MAGNESIUM OXIDE
  14. METOPROLOL SUCCINATE [Concomitant]
     Active Substance: METOPROLOL SUCCINATE
  15. MILK OFMAGNESIA [Concomitant]
  16. MIRALAX [Concomitant]
     Active Substance: POLYETHYLENE GLYCOL 3350
  17. MIRTAZAPINE [Concomitant]
     Active Substance: MIRTAZAPINE
  18. VITAMINS [Concomitant]
     Active Substance: VITAMINS
  19. NYSTATIN EXTERNAL CREAM [Concomitant]
  20. OMEPRAZOLE [Concomitant]
     Active Substance: OMEPRAZOLE
  21. SEVELAMER CARBONATE [Concomitant]
     Active Substance: SEVELAMER CARBONATE
  22. SIMETHECONE SUSPENSION [Concomitant]
  23. SODIUM BICARBONATE [Concomitant]
     Active Substance: SODIUM BICARBONATE
  24. SULFAMETHOXAZOLE\TRIMETHOPRIM [Concomitant]
     Active Substance: SULFAMETHOXAZOLE\TRIMETHOPRIM
  25. VITAMIN D3 [Concomitant]
     Active Substance: CHOLECALCIFEROL

REACTIONS (2)
  - Dyspnoea [None]
  - Fluid retention [None]
